FAERS Safety Report 5751632-X (Version None)
Quarter: 2008Q2

REPORT INFORMATION
  Report Type: 
  Country: None (occurrence: None)
  Receive Date: 20080528
  Receipt Date: 20080520
  Transmission Date: 20081010
  Serious: Yes (Other)
  Sender: FDA-Public Use
  Company Number: PHHY2008JP08409

PATIENT
  Sex: Female

DRUGS (1)
  1. RITALIN [Suspect]
     Indication: DEPRESSION
     Dosage: 10 MG/DAY
     Route: 048

REACTIONS (3)
  - DEMENTIA [None]
  - DEPRESSIVE SYMPTOM [None]
  - MEMORY IMPAIRMENT [None]
